FAERS Safety Report 11419291 (Version 2)
Quarter: 2015Q3

REPORT INFORMATION
  Report Type: Spontaneous
  Country: GB (occurrence: GB)
  Receive Date: 20150826
  Receipt Date: 20150826
  Transmission Date: 20151125
  Serious: Yes (Hospitalization)
  Sender: FDA-Public Use
  Company Number: GB-ACTAVIS-2013B-02316

PATIENT
  Age: 66 Year
  Sex: Female
  Weight: 61 kg

DRUGS (16)
  1. RITUXIMAB [Suspect]
     Active Substance: RITUXIMAB
     Dosage: 650 MG, UNKNOWN
     Route: 065
     Dates: start: 20130201
  2. RITUXIMAB [Suspect]
     Active Substance: RITUXIMAB
     Indication: DIFFUSE LARGE B-CELL LYMPHOMA
     Dosage: 650 MG, UNKNOWN
     Route: 065
     Dates: start: 20130313
  3. ALLOPURINOL. [Concomitant]
     Active Substance: ALLOPURINOL
     Indication: PRODUCT USED FOR UNKNOWN INDICATION
     Dosage: 300 MG, UNK
     Route: 048
     Dates: start: 201301
  4. VINCRISTINE (UNKNOWN) [Suspect]
     Active Substance: VINCRISTINE
     Indication: DIFFUSE LARGE B-CELL LYMPHOMA
     Dosage: 2 MG, UNKNOWN
     Route: 065
     Dates: start: 20130313
  5. OMEPRAZOLE. [Concomitant]
     Active Substance: OMEPRAZOLE
     Indication: PRODUCT USED FOR UNKNOWN INDICATION
     Dosage: 20 MG, UNK
     Route: 065
     Dates: start: 2012
  6. DOXORUBICIN (UNKNOWN) [Suspect]
     Active Substance: DOXORUBICIN
     Dosage: 80 MG, UNKNOWN
     Route: 042
     Dates: start: 20130201
  7. PARACETAMOL [Concomitant]
     Active Substance: ACETAMINOPHEN
     Indication: PRODUCT USED FOR UNKNOWN INDICATION
     Dosage: UNK (500 MG - 1G)
     Route: 065
  8. PREDNISOLONE (UNKNOWN) [Suspect]
     Active Substance: PREDNISOLONE
     Indication: DIFFUSE LARGE B-CELL LYMPHOMA
     Dosage: 100 MG, DAILY
     Route: 048
     Dates: start: 20130318
  9. CYCLOPHOSPHAMIDE (UNKNOWN) [Suspect]
     Active Substance: CYCLOPHOSPHAMIDE
     Indication: DIFFUSE LARGE B-CELL LYMPHOMA
     Dosage: 1300 MG, UNKNOWN
     Route: 065
     Dates: start: 20130313
  10. PREDNISOLONE (UNKNOWN) [Suspect]
     Active Substance: PREDNISOLONE
     Dosage: 100 MG, DAILY
     Route: 048
     Dates: start: 20130201
  11. VINCRISTINE (UNKNOWN) [Suspect]
     Active Substance: VINCRISTINE
     Dosage: 2 MG, UNKNOWN
     Route: 065
     Dates: start: 20130201
  12. LEVOTHYROXINE. [Concomitant]
     Active Substance: LEVOTHYROXINE
     Indication: PRODUCT USED FOR UNKNOWN INDICATION
     Dosage: 75 ?G, UNK
     Route: 048
     Dates: start: 2002
  13. TRAMADOL. [Concomitant]
     Active Substance: TRAMADOL
     Indication: PRODUCT USED FOR UNKNOWN INDICATION
     Dosage: 400 MG, UNK
     Route: 065
  14. CYCLOPHOSPHAMIDE (UNKNOWN) [Suspect]
     Active Substance: CYCLOPHOSPHAMIDE
     Dosage: 1300 MG, UNKNOWN
     Route: 065
     Dates: start: 20130201
  15. DOXORUBICIN (UNKNOWN) [Suspect]
     Active Substance: DOXORUBICIN
     Indication: DIFFUSE LARGE B-CELL LYMPHOMA
     Dosage: 80 MG, UNKNOWN
     Route: 042
     Dates: start: 20130313
  16. ORAMORPH [Concomitant]
     Active Substance: MORPHINE SULFATE
     Indication: PRODUCT USED FOR UNKNOWN INDICATION
     Dosage: UNK (10-30 ML)
     Route: 065
     Dates: start: 2013

REACTIONS (3)
  - Nausea [Recovered/Resolved]
  - Pyrexia [Recovered/Resolved]
  - Pneumonia [Recovered/Resolved]

NARRATIVE: CASE EVENT DATE: 20130324
